FAERS Safety Report 4296362-9 (Version None)
Quarter: 2004Q1

REPORT INFORMATION
  Report Type: 
  Country: None (occurrence: None)
  Receive Date: 20040217
  Receipt Date: 20040206
  Transmission Date: 20041129
  Serious: Yes (Other)
  Sender: FDA-Public Use
  Company Number: 200410926US

PATIENT
  Age: 81 Year
  Sex: Female

DRUGS (5)
  1. ALLEGRA [Suspect]
     Indication: LUNG INFECTION
     Route: 048
     Dates: start: 20031001, end: 20040205
  2. ALLEGRA [Suspect]
     Indication: MULTIPLE ALLERGIES
     Route: 048
     Dates: start: 20031001, end: 20040205
  3. OXAZEPAM [Concomitant]
     Dosage: DOSE: UNK
  4. ASPIRIN [Concomitant]
  5. VITAMINS NOS [Concomitant]
     Dosage: DOSE: UNK

REACTIONS (5)
  - DRUG INEFFECTIVE [None]
  - DYSPNOEA [None]
  - HYPERTENSION [None]
  - MALAISE [None]
  - RESTLESSNESS [None]
